FAERS Safety Report 7654844-3 (Version None)
Quarter: 2011Q3

REPORT INFORMATION
  Report Type: 
  Country: None (occurrence: None)
  Receive Date: 20110803
  Receipt Date: 20110803
  Transmission Date: 20111222
  Serious: Yes (Other)
  Sender: FDA-Public Use
  Company Number: None

PATIENT
  Sex: Female
  Weight: 100.91 kg

DRUGS (1)
  1. NEXAVAR [Suspect]
     Indication: NEOPLASM MALIGNANT
     Dosage: 1-200MG TABLET BID PO
     Route: 048
     Dates: start: 20110702, end: 20110708

REACTIONS (3)
  - METABOLIC DISORDER [None]
  - BLISTER [None]
  - DRUG HYPERSENSITIVITY [None]
